FAERS Safety Report 8842993 (Version 1)
Quarter: 2012Q4

REPORT INFORMATION
  Report Type: Report from Study
  Country: US (occurrence: US)
  Receive Date: 20121016
  Receipt Date: 20121016
  Transmission Date: 20130627
  Serious: Yes (Other)
  Sender: FDA-Public Use
  Company Number: US-ABBOTT-12P-163-0992898-00

PATIENT
  Age: 38 Year
  Sex: Female

DRUGS (4)
  1. HUMIRA [Suspect]
     Indication: CROHN^S DISEASE
     Dates: start: 200911, end: 20091223
  2. HUMIRA [Suspect]
  3. LIALDA [Concomitant]
     Indication: PRODUCT USED FOR UNKNOWN INDICATION
  4. 6-MP [Concomitant]
     Indication: PRODUCT USED FOR UNKNOWN INDICATION
     Dosage: 75 mg daily

REACTIONS (6)
  - Obstruction [Recovering/Resolving]
  - Clostridium difficile infection [Unknown]
  - Intestinal perforation [Unknown]
  - Injection site pain [Unknown]
  - Drug effect decreased [Unknown]
  - Injection site pain [Unknown]
